FAERS Safety Report 8826993 (Version 1)
Quarter: 2012Q4

REPORT INFORMATION
  Report Type: 
  Country: US (occurrence: US)
  Receive Date: 20121008
  Receipt Date: 20121008
  Transmission Date: 20130627
  Serious: Yes (Other)
  Sender: FDA-Public Use
  Company Number: US-BIOGENIDEC-2012BI041330

PATIENT
  Sex: Female

DRUGS (1)
  1. AVONEX [Suspect]
     Indication: MULTIPLE SCLEROSIS
     Route: 030
     Dates: start: 19990901

REACTIONS (7)
  - Retinitis [Recovered/Resolved]
  - Weight increased [Recovered/Resolved]
  - Swelling face [Recovered/Resolved]
  - Full blood count increased [Unknown]
  - Metabolic function test abnormal [Unknown]
  - Hypothyroidism [Not Recovered/Not Resolved]
  - Feeling hot [Recovered/Resolved]
